FAERS Safety Report 15239309 (Version 3)
Quarter: 2018Q4

REPORT INFORMATION
  Report Type: Spontaneous
  Country: NL (occurrence: NL)
  Receive Date: 20180803
  Receipt Date: 20180822
  Transmission Date: 20190204
  Serious: Yes (Death)
  Sender: FDA-Public Use
  Company Number: NL-TERSERA THERAPEUTICS LLC-TSR2017000810

PATIENT

DRUGS (9)
  1. FENPROCOUMON [Concomitant]
     Active Substance: PHENPROCOUMON
     Indication: PRODUCT USED FOR UNKNOWN INDICATION
     Dosage: UNK
     Route: 065
  2. MARCOUMAR [Suspect]
     Active Substance: PHENPROCOUMON
     Dosage: ACENOCOUMAROL
     Route: 065
  3. FUROSEMIDE. [Concomitant]
     Active Substance: FUROSEMIDE
     Indication: PRODUCT USED FOR UNKNOWN INDICATION
     Dosage: 40 MILLIGRAM, BID
     Route: 065
  4. MARCOUMAR [Suspect]
     Active Substance: PHENPROCOUMON
     Indication: PRODUCT USED FOR UNKNOWN INDICATION
     Dosage: UNK
     Route: 065
  5. ZOLADEX [Suspect]
     Active Substance: GOSERELIN ACETATE
     Indication: PROSTATE CANCER
     Dosage: 10.8 MILLIGRAM, Q3 MONTHS
     Route: 058
     Dates: start: 20170526
  6. VERAPAMIL [Concomitant]
     Active Substance: VERAPAMIL HYDROCHLORIDE
     Indication: PRODUCT USED FOR UNKNOWN INDICATION
     Dosage: 240 MILLIGRAM, QD
     Route: 065
  7. METOPROLOL. [Concomitant]
     Active Substance: METOPROLOL
     Indication: PRODUCT USED FOR UNKNOWN INDICATION
     Dosage: 100 MILLIGRAM, UNK
     Route: 065
  8. TAMSULOSINE                        /01280301/ [Concomitant]
     Active Substance: TAMSULOSIN
     Indication: PRODUCT USED FOR UNKNOWN INDICATION
     Dosage: 0.4 MILLIGRAM, UNK
     Route: 065
  9. OMEPRAZOL                          /00661201/ [Concomitant]
     Active Substance: OMEPRAZOLE
     Indication: PRODUCT USED FOR UNKNOWN INDICATION
     Dosage: 40 MILLIGRAM, UNK
     Route: 065

REACTIONS (2)
  - Cerebral haemorrhage [Fatal]
  - Injection site haematoma [Recovered/Resolved]

NARRATIVE: CASE EVENT DATE: 20170824
